FAERS Safety Report 7685808-1 (Version None)
Quarter: 2011Q3

REPORT INFORMATION
  Report Type: 
  Country: None (occurrence: None)
  Receive Date: 20110815
  Receipt Date: 20110815
  Transmission Date: 20111222
  Serious: Yes (Death)
  Sender: FDA-Public Use
  Company Number: None

PATIENT
  Age: 20 Year
  Sex: Male
  Weight: 49.895 kg

DRUGS (1)
  1. AVASTIN [Suspect]
     Indication: METASTASES TO BONE
     Dosage: EVERY 30 DAYS
     Dates: start: 20101214, end: 20110330

REACTIONS (1)
  - CEREBRAL HAEMORRHAGE [None]
